FAERS Safety Report 25979912 (Version 2)
Quarter: 2025Q4

REPORT INFORMATION
  Report Type: Report from Study
  Country: EG (occurrence: EG)
  Receive Date: 20251030
  Receipt Date: 20251107
  Transmission Date: 20260118
  Serious: Yes (Hospitalization, Other)
  Sender: NOVO NORDISK
  Company Number: EG-NOVOPROD-1547129

PATIENT
  Sex: Female
  Weight: 73 kg

DRUGS (3)
  1. EUTHYROX [Concomitant]
     Active Substance: LEVOTHYROXINE SODIUM
     Indication: Hyperthyroidism
     Dosage: 1 TAB AND HALF/DAY ON AN EMPTY STOMACH
     Route: 048
  2. INSULIN HUMAN [Suspect]
     Active Substance: INSULIN HUMAN
     Indication: Type 2 diabetes mellitus
     Dosage: 30 IU, QD
     Route: 058
     Dates: start: 2009
  3. INSULIN HUMAN [Suspect]
     Active Substance: INSULIN HUMAN
     Dosage: 40 IU, QD
     Route: 058

REACTIONS (9)
  - Diabetic retinopathy [Not Recovered/Not Resolved]
  - Retinal detachment [Not Recovered/Not Resolved]
  - Ophthalmic fluid-air exchange procedure [Not Recovered/Not Resolved]
  - Intraocular lens implant [Not Recovered/Not Resolved]
  - Cataract operation [Not Recovered/Not Resolved]
  - Surgery [Not Recovered/Not Resolved]
  - Retinal laser coagulation [Not Recovered/Not Resolved]
  - Glaucoma [Not Recovered/Not Resolved]
  - Hyperglycaemia [Not Recovered/Not Resolved]

NARRATIVE: CASE EVENT DATE: 20220101
